FAERS Safety Report 11193570 (Version 1)
Quarter: 2015Q2

REPORT INFORMATION
  Report Type: Spontaneous
  Country: DE (occurrence: DE)
  Receive Date: 20150616
  Receipt Date: 20150616
  Transmission Date: 20150821
  Serious: Yes (Hospitalization, Disabling, Other)
  Sender: FDA-Public Use
  Company Number: DE-ELI_LILLY_AND_COMPANY-DE201506002140

PATIENT
  Age: 33 Year
  Sex: Female

DRUGS (3)
  1. PHENPROCOUMON [Concomitant]
     Active Substance: PHENPROCOUMON
     Indication: ANTICOAGULANT THERAPY
     Dosage: UNK, UNKNOWN
     Route: 065
  2. ALIMTA [Suspect]
     Active Substance: PEMETREXED DISODIUM
     Indication: SIGNET-RING CELL CARCINOMA
     Dosage: 500 MG/M2, 3/W
     Route: 042
     Dates: start: 201406, end: 201503
  3. CISPLATIN. [Concomitant]
     Active Substance: CISPLATIN
     Indication: PALLIATIVE CARE
     Dosage: UNK, UNKNOWN
     Route: 065
     Dates: start: 201406

REACTIONS (6)
  - General physical health deterioration [Unknown]
  - Enterocolitis bacterial [Unknown]
  - Bone marrow failure [Unknown]
  - Tubulointerstitial nephritis [Unknown]
  - Stomatitis [Unknown]
  - Renal failure [Unknown]

NARRATIVE: CASE EVENT DATE: 20150316
